FAERS Safety Report 7941046-6 (Version None)
Quarter: 2011Q4

REPORT INFORMATION
  Report Type: 
  Country: None (occurrence: None)
  Receive Date: 20111122
  Receipt Date: 20111110
  Transmission Date: 20120403
  Serious: Yes (Hospitalization)
  Sender: FDA-Public Use
  Company Number: 2011SP003840

PATIENT
  Sex: Female

DRUGS (1)
  1. LATUDA [Suspect]
     Indication: PSYCHOTIC DISORDER
     Dosage: 100 MG, ORAL
     Route: 048
     Dates: start: 20110101

REACTIONS (2)
  - CONDITION AGGRAVATED [None]
  - PSYCHOTIC DISORDER [None]
